FAERS Safety Report 15260767 (Version 1)
Quarter: 2018Q3

REPORT INFORMATION
  Report Type: Spontaneous
  Country: NZ (occurrence: NZ)
  Receive Date: 20180809
  Receipt Date: 20180809
  Transmission Date: 20181010
  Serious: Yes (Hospitalization)
  Sender: FDA-Public Use
  Company Number: NZ-BIOGEN-2018BI00616178

PATIENT
  Age: 59 Year
  Sex: Male

DRUGS (1)
  1. TYSABRI [Suspect]
     Active Substance: NATALIZUMAB
     Indication: MULTIPLE SCLEROSIS
     Dosage: INFUSED OVER 1 HOUR
     Route: 042
     Dates: end: 20180601

REACTIONS (4)
  - Procedural complication [Unknown]
  - Meningitis bacterial [Not Recovered/Not Resolved]
  - Cerebrospinal fluid leakage [Unknown]
  - Otorrhoea [Unknown]

NARRATIVE: CASE EVENT DATE: 20180620
